FAERS Safety Report 16506013 (Version 1)
Quarter: 2019Q3

REPORT INFORMATION
  Report Type: Spontaneous
  Country: US (occurrence: US)
  Receive Date: 20190701
  Receipt Date: 20190701
  Transmission Date: 20191004
  Serious: No
  Sender: FDA-Public Use
  Company Number: US-CLOVIS ONCOLOGY-CLO-2019-000635

PATIENT
  Sex: Male

DRUGS (2)
  1. RUBRACA [Suspect]
     Active Substance: RUCAPARIB CAMSYLATE
     Dosage: TWO PILLS TWICE DAILY
  2. RUBRACA [Suspect]
     Active Substance: RUCAPARIB CAMSYLATE
     Indication: PROSTATE CANCER
     Dosage: 600 MG, BID
     Dates: start: 20190327

REACTIONS (4)
  - Product use in unapproved indication [Unknown]
  - Dysgeusia [Not Recovered/Not Resolved]
  - Joint swelling [Not Recovered/Not Resolved]
  - Constipation [Unknown]

NARRATIVE: CASE EVENT DATE: 201903
